FAERS Safety Report 4394616-9 (Version None)
Quarter: 2004Q3

REPORT INFORMATION
  Report Type: 
  Country: None (occurrence: None)
  Receive Date: 20040706
  Receipt Date: 20040628
  Transmission Date: 20050211
  Serious: Yes (Death)
  Sender: FDA-Public Use
  Company Number: 2004026441

PATIENT
  Age: 21 Year
  Sex: Female
  Weight: 63.5036 kg

DRUGS (3)
  1. LIPITOR [Suspect]
     Indication: BLOOD CHOLESTEROL INCREASED
     Dosage: 10 MG (1 IN 1 D), ORAL
     Route: 048
  2. AMOXICILLIN [Suspect]
     Indication: ILL-DEFINED DISORDER
  3. ERYTHROMYCIN [Suspect]
     Indication: ILL-DEFINED DISORDER

REACTIONS (3)
  - DRUG HYPERSENSITIVITY [None]
  - ROAD TRAFFIC ACCIDENT [None]
  - URTICARIA GENERALISED [None]
